FAERS Safety Report 25028983 (Version 4)
Quarter: 2025Q2

REPORT INFORMATION
  Report Type: Report from Study
  Country: US (occurrence: US)
  Receive Date: 20250302
  Receipt Date: 20250516
  Transmission Date: 20250717
  Serious: No
  Sender: SUNOVION
  Company Number: US-SUMITOMO PHARMA SWITZERLAND GMBH-2025SPA002172

PATIENT

DRUGS (2)
  1. ORGOVYX [Suspect]
     Active Substance: RELUGOLIX
     Indication: Prostate cancer
     Route: 048
  2. ORGOVYX [Suspect]
     Active Substance: RELUGOLIX
     Dosage: 120 MG, QD...STARTED WITH BIOLOGICS
     Route: 048
     Dates: start: 20250206

REACTIONS (10)
  - Shoulder fracture [Unknown]
  - Influenza [Unknown]
  - Fall [Unknown]
  - Chest discomfort [Unknown]
  - Feeling abnormal [Unknown]
  - Arthralgia [Unknown]
  - Feeling hot [Unknown]
  - Fatigue [Unknown]
  - Hyperhidrosis [Unknown]
  - Back pain [Unknown]
